FAERS Safety Report 8184003-X (Version None)
Quarter: 2012Q1

REPORT INFORMATION
  Report Type: 
  Country: None (occurrence: None)
  Receive Date: 20120305
  Receipt Date: 20120229
  Transmission Date: 20120608
  Serious: Yes (Hospitalization)
  Sender: FDA-Public Use
  Company Number: BE-B.I. PHARMACEUTICALS,INC./RIDGEFIELD-2012-BL-00058BL

PATIENT
  Sex: Female

DRUGS (11)
  1. ARICEPT [Concomitant]
     Dates: start: 20101124
  2. BUMETANIDE [Concomitant]
     Dates: start: 20111010
  3. SIMVASTAMED [Concomitant]
     Dates: start: 20101124
  4. BISOPROLOL FUMARATE [Concomitant]
     Dates: start: 20101127
  5. PRADAXA [Suspect]
     Indication: ATRIAL FIBRILLATION
     Dosage: 220 MG
     Route: 048
     Dates: start: 20111220
  6. D-VITAL FORCE [Concomitant]
     Dates: start: 20111007
  7. OMEPRAZOLE [Concomitant]
     Dates: start: 20111117
  8. DOMINAL [Concomitant]
     Dates: start: 20111007
  9. ALDACTONE [Concomitant]
     Dates: start: 20111010
  10. RAMIPRIL [Concomitant]
     Dates: start: 20111010
  11. VITAMIN B-12 [Concomitant]
     Dates: start: 20111117

REACTIONS (3)
  - GASTROINTESTINAL HAEMORRHAGE [None]
  - INTRA-ABDOMINAL HAEMANGIOMA [None]
  - MELAENA [None]
